FAERS Safety Report 10622799 (Version 2)
Quarter: 2014Q4

REPORT INFORMATION
  Report Type: Spontaneous
  Country: CA (occurrence: CA)
  Receive Date: 20141203
  Receipt Date: 20141203
  Transmission Date: 20150529
  Serious: Yes (Other)
  Sender: FDA-Public Use
  Company Number: CA-009507513-1411CAN012162

PATIENT
  Age: 51 Year
  Sex: Male

DRUGS (6)
  1. COPEGUS [Suspect]
     Active Substance: RIBAVIRIN
     Dosage: UNK
     Route: 065
     Dates: start: 20141124
  2. SALBUTAMOL SANDOZ (ALBUTEROL) [Concomitant]
     Indication: ANTASTHMATIC DRUG LEVEL
     Dosage: UNK
  3. VICTRELIS [Suspect]
     Active Substance: BOCEPREVIR
     Indication: CHRONIC HEPATITIS C
     Dosage: 800 MG, TID
     Route: 048
     Dates: start: 20140918, end: 20141119
  4. COPEGUS [Suspect]
     Active Substance: RIBAVIRIN
     Indication: CHRONIC HEPATITIS C
     Dosage: 1200 MG, QD, 42 TABLET/WEEK
     Route: 048
     Dates: start: 20140821, end: 20141118
  5. VICTRELIS [Suspect]
     Active Substance: BOCEPREVIR
     Dosage: UNK
     Route: 065
     Dates: start: 20141124
  6. PEGASYS [Suspect]
     Active Substance: PEGINTERFERON ALFA-2A
     Indication: CHRONIC HEPATITIS C
     Dosage: 180 MICROGRAM, QW, 0.5ML AUTOINJECTOR, PREFILLED SYRINGE
     Route: 058
     Dates: start: 20140821, end: 20141118

REACTIONS (4)
  - General symptom [Unknown]
  - Influenza [Not Recovered/Not Resolved]
  - Drowning [Unknown]
  - Dyspnoea [Not Recovered/Not Resolved]

NARRATIVE: CASE EVENT DATE: 20141118
